FAERS Safety Report 8936856 (Version 1)
Quarter: 2012Q4

REPORT INFORMATION
  Report Type: 
  Country: US (occurrence: US)
  Receive Date: 20121130
  Receipt Date: 20121130
  Transmission Date: 20130627
  Serious: No
  Sender: FDA-Public Use
  Company Number: US-PFIZER INC-2012301560

PATIENT
  Age: 67 Year
  Sex: Male

DRUGS (2)
  1. ADVIL [Suspect]
     Indication: ARTHRALGIA
     Dosage: a total of 6 tablets in a day and each tablet was of 200 mg
     Route: 048
     Dates: start: 201211
  2. ATENOLOL [Concomitant]
     Indication: BLOOD PRESSURE HIGH
     Dosage: 50 mg, daily

REACTIONS (1)
  - Pollakiuria [Not Recovered/Not Resolved]
